FAERS Safety Report 18573697 (Version 1)
Quarter: 2020Q4

REPORT INFORMATION
  Report Type: Other
  Country: PT (occurrence: PT)
  Receive Date: 20201203
  Receipt Date: 20201203
  Transmission Date: 20210114
  Serious: Yes (Other)
  Sender: FDA-Public Use
  Company Number: PT-ROCHE-2718921

PATIENT

DRUGS (2)
  1. OCRELIZUMAB. [Suspect]
     Active Substance: OCRELIZUMAB
     Indication: PRIMARY PROGRESSIVE MULTIPLE SCLEROSIS
  2. OCRELIZUMAB. [Suspect]
     Active Substance: OCRELIZUMAB
     Indication: RELAPSING-REMITTING MULTIPLE SCLEROSIS
     Route: 065

REACTIONS (7)
  - Basedow^s disease [Unknown]
  - Respiratory tract infection [Unknown]
  - Hyperthyroidism [Unknown]
  - Urinary tract infection [Unknown]
  - Seizure [Unknown]
  - Prostate cancer [Unknown]
  - Infusion related reaction [Unknown]
